FAERS Safety Report 16206470 (Version 1)
Quarter: 2019Q2

REPORT INFORMATION
  Report Type: Report from Study
  Country: US (occurrence: US)
  Receive Date: 20190417
  Receipt Date: 20190417
  Transmission Date: 20190711
  Serious: Yes (Hospitalization, Other)
  Sender: FDA-Public Use
  Company Number: US-GILEAD-2019-0402731

PATIENT
  Age: 64 Year
  Sex: Female

DRUGS (18)
  1. AMBRISENTAN [Suspect]
     Active Substance: AMBRISENTAN
     Indication: PULMONARY HYPERTENSION
     Dosage: 10 MG, QD
     Route: 065
     Dates: start: 20140225
  2. DIGOX [DIGOXIN] [Concomitant]
  3. SYMBICORT [Concomitant]
     Active Substance: BUDESONIDE\FORMOTEROL FUMARATE DIHYDRATE
  4. METFORMIN [Concomitant]
     Active Substance: METFORMIN HYDROCHLORIDE
  5. QVAR [Concomitant]
     Active Substance: BECLOMETHASONE DIPROPIONATE
  6. ZOLPIDEM [Concomitant]
     Active Substance: ZOLPIDEM\ZOLPIDEM TARTRATE
  7. ALOGLIPTIN. [Concomitant]
     Active Substance: ALOGLIPTIN
  8. FUROSEMIDE. [Concomitant]
     Active Substance: FUROSEMIDE
  9. IBU [Concomitant]
     Active Substance: IBUPROFEN
  10. VENTOLIN HFA [Concomitant]
     Active Substance: ALBUTEROL SULFATE
  11. FOLIC ACID. [Concomitant]
     Active Substance: FOLIC ACID
  12. GLIMEPRID [Concomitant]
     Active Substance: GLIMEPIRIDE
  13. GUAIATUSS AC [Concomitant]
  14. RANITIDINE. [Concomitant]
     Active Substance: RANITIDINE
  15. TRAMADOL. [Concomitant]
     Active Substance: TRAMADOL
  16. TADALAFIL. [Concomitant]
     Active Substance: TADALAFIL
  17. GABAPENTIN. [Concomitant]
     Active Substance: GABAPENTIN
  18. SPIRONOLACTON [Concomitant]
     Active Substance: SPIRONOLACTONE

REACTIONS (1)
  - Pneumonia [Not Recovered/Not Resolved]
